FAERS Safety Report 21361067 (Version 1)
Quarter: 2022Q3

REPORT INFORMATION
  Report Type: Spontaneous
  Country: DE (occurrence: DE)
  Receive Date: 20220921
  Receipt Date: 20220921
  Transmission Date: 20221026
  Serious: Yes (Other)
  Sender: FDA-Public Use
  Company Number: DE-BAYER-2022A130326

PATIENT
  Age: 35 Year
  Sex: Male

DRUGS (3)
  1. SORAFENIB [Suspect]
     Active Substance: SORAFENIB
     Indication: Hepatocellular carcinoma
  2. RAMUCIRUMAB [Suspect]
     Active Substance: RAMUCIRUMAB
  3. CABOZANTINIB [Suspect]
     Active Substance: CABOZANTINIB

REACTIONS (2)
  - Alpha 1 foetoprotein increased [None]
  - Drug intolerance [None]
